FAERS Safety Report 14176300 (Version 8)
Quarter: 2018Q1

REPORT INFORMATION
  Report Type: Spontaneous
  Country: US (occurrence: US)
  Receive Date: 20171109
  Receipt Date: 20180201
  Transmission Date: 20180508
  Serious: Yes (Death, Hospitalization, Other)
  Sender: FDA-Public Use
  Company Number: US-CELGENEUS-USA-20171101810

PATIENT
  Age: 76 Year
  Sex: Female
  Weight: 133.93 kg

DRUGS (2)
  1. POMALYST [Suspect]
     Active Substance: POMALIDOMIDE
     Indication: PLASMA CELL MYELOMA
     Dosage: 1 MILLIGRAM
     Route: 048
     Dates: start: 20171007, end: 20180109
  2. DARZALEX [Concomitant]
     Active Substance: DARATUMUMAB
     Indication: PLASMA CELL MYELOMA
     Route: 041

REACTIONS (4)
  - Platelet count decreased [Unknown]
  - Renal failure [Fatal]
  - Plasma cell myeloma [Fatal]
  - Full blood count decreased [Unknown]

NARRATIVE: CASE EVENT DATE: 2017
